FAERS Safety Report 5699586-9 (Version None)
Quarter: 2008Q2

REPORT INFORMATION
  Report Type: 
  Country: None (occurrence: None)
  Receive Date: 20080410
  Receipt Date: 20080402
  Transmission Date: 20081010
  Serious: Yes (Other)
  Sender: FDA-Public Use
  Company Number: NL-TEVA-169606ISR

PATIENT
  Sex: Female
  Weight: 67 kg

DRUGS (2)
  1. PACLITAXEL [Suspect]
     Indication: BREAST CANCER
     Route: 042
     Dates: start: 20071206
  2. TRASTUZUMAB [Concomitant]
     Route: 042
     Dates: start: 20071206

REACTIONS (2)
  - DERMATITIS BULLOUS [None]
  - OEDEMA PERIPHERAL [None]
